FAERS Safety Report 18245638 (Version 2)
Quarter: 2020Q4

REPORT INFORMATION
  Report Type: Report from Study
  Country: US (occurrence: US)
  Receive Date: 20200909
  Receipt Date: 20201104
  Transmission Date: 20210113
  Serious: Yes (Hospitalization, Other)
  Sender: FDA-Public Use
  Company Number: US-B.I. PHARMACEUTICALS,INC./RIDGEFIELD-2020-BI-046359

PATIENT
  Age: 62 Year
  Sex: Male
  Weight: 82.55 kg

DRUGS (2)
  1. TRULICITY [Concomitant]
     Active Substance: DULAGLUTIDE
     Indication: TYPE 2 DIABETES MELLITUS
  2. SYNJARDY [Suspect]
     Active Substance: EMPAGLIFLOZIN\METFORMIN HYDROCHLORIDE
     Indication: TYPE 2 DIABETES MELLITUS
     Dosage: UNKNOWN
     Route: 048
     Dates: start: 201907, end: 202008

REACTIONS (3)
  - Cardiac failure congestive [Unknown]
  - Arterial occlusive disease [Recovered/Resolved]
  - Pulmonary oedema [Unknown]

NARRATIVE: CASE EVENT DATE: 202007
